FAERS Safety Report 8832611 (Version 3)
Quarter: 2012Q4

REPORT INFORMATION
  Report Type: 
  Country: US (occurrence: US)
  Receive Date: 20121010
  Receipt Date: 20121210
  Transmission Date: 20130627
  Serious: No
  Sender: FDA-Public Use
  Company Number: US-PFIZER INC-2012250902

PATIENT
  Age: 81 Year
  Sex: Female

DRUGS (13)
  1. ZOLOFT [Suspect]
     Dosage: UNK
  2. LEVOTHYROXINE [Concomitant]
     Dosage: UNK
  3. AMLODIPINE [Concomitant]
     Dosage: 5 mg, UNK
  4. SINEMET [Concomitant]
     Dosage: 25/100, UNK
  5. VITAMIN C [Concomitant]
     Dosage: UNK
  6. VESICARE [Concomitant]
     Dosage: UNK
  7. ATENOLOL [Concomitant]
     Dosage: 50, UNK
  8. ASA [Concomitant]
     Dosage: 81, UNK
  9. LOSARTAN POTASSIUM W/HYDROCHLOROTHIAZIDE [Concomitant]
     Dosage: 100/25, UNK
  10. NEXIUM [Concomitant]
     Dosage: 40, UNK
  11. VITAMIN D [Concomitant]
     Dosage: UNK
  12. LORATADINE [Concomitant]
     Dosage: UNK
  13. VITAMIN B12 [Concomitant]
     Dosage: UNK

REACTIONS (1)
  - Psychiatric symptom [Unknown]
